FAERS Safety Report 6220374-9 (Version None)
Quarter: 2009Q2

REPORT INFORMATION
  Report Type: 
  Country: None (occurrence: None)
  Receive Date: 20090610
  Receipt Date: 20090604
  Transmission Date: 20091009
  Serious: Yes (Death, Hospitalization)
  Sender: FDA-Public Use
  Company Number: US-CELGENEUS-163-21880-09051441

PATIENT
  Sex: Male
  Weight: 99.5 kg

DRUGS (8)
  1. REVLIMID [Suspect]
     Route: 048
     Dates: start: 20090427, end: 20090511
  2. DEXAMETHASONE [Suspect]
     Route: 048
     Dates: start: 20090427, end: 20090509
  3. BORTEZOMIB [Suspect]
     Dates: start: 20090427, end: 20090504
  4. BACTRIM [Suspect]
     Indication: DRUG USE FOR UNKNOWN INDICATION
     Route: 065
  5. ASPIRIN [Concomitant]
     Route: 048
  6. CARISOPRODOL [Concomitant]
     Indication: DRUG USE FOR UNKNOWN INDICATION
     Route: 065
  7. PERCOCET [Concomitant]
     Indication: DRUG USE FOR UNKNOWN INDICATION
     Route: 065
  8. VALTREX [Concomitant]
     Indication: DRUG USE FOR UNKNOWN INDICATION
     Route: 065

REACTIONS (9)
  - ENCEPHALOPATHY [None]
  - ERYTHEMA MULTIFORME [None]
  - HYPERBILIRUBINAEMIA [None]
  - HYPOXIA [None]
  - INFECTION [None]
  - MULTI-ORGAN FAILURE [None]
  - NEUTROPENIA [None]
  - RENAL FAILURE [None]
  - THROMBOCYTOPENIA [None]
